FAERS Safety Report 7006455-0 (Version None)
Quarter: 2010Q3

REPORT INFORMATION
  Report Type: 
  Country: None (occurrence: None)
  Receive Date: 20100921
  Receipt Date: 20100916
  Transmission Date: 20110219
  Serious: Yes (Hospitalization)
  Sender: FDA-Public Use
  Company Number: FR-MERCK-1009FRA00060

PATIENT
  Age: 65 Year
  Sex: Female

DRUGS (14)
  1. EMEND [Suspect]
     Indication: CHEMOTHERAPY
     Route: 048
     Dates: start: 20100806, end: 20100806
  2. EMEND [Suspect]
     Route: 048
     Dates: start: 20100807, end: 20100810
  3. BLEOMYCIN [Suspect]
     Indication: YOLK SAC TUMOUR SITE UNSPECIFIED
     Route: 042
     Dates: start: 20100806, end: 20100813
  4. ETOPOSIDE [Suspect]
     Indication: YOLK SAC TUMOUR SITE UNSPECIFIED
     Route: 042
     Dates: start: 20100806, end: 20100810
  5. CISPLATIN [Suspect]
     Indication: YOLK SAC TUMOUR SITE UNSPECIFIED
     Route: 042
     Dates: start: 20100806, end: 20100810
  6. FENOFIBRATE [Concomitant]
     Route: 048
  7. BROMAZEPAM [Concomitant]
     Route: 048
  8. ACETAMINOPHEN [Concomitant]
     Route: 048
  9. DEXCHLORPHENIRAMINE MALEATE [Concomitant]
     Route: 065
  10. ONDANSETRON HYDROCHLORIDE [Concomitant]
     Route: 065
     Dates: start: 20100806, end: 20100810
  11. METHYLPREDNISOLONE SODIUM SUCCINATE [Concomitant]
     Route: 065
     Dates: start: 20100806, end: 20100810
  12. METOPIMAZINE [Concomitant]
     Route: 065
     Dates: start: 20100806, end: 20100810
  13. PEGFILGRASTIM [Concomitant]
     Route: 065
     Dates: start: 20100811, end: 20100811
  14. ALPRAZOLAM [Concomitant]
     Route: 065
     Dates: start: 20100806, end: 20100810

REACTIONS (2)
  - DRUG INTERACTION [None]
  - FEBRILE NEUTROPENIA [None]
